FAERS Safety Report 7081409-7 (Version None)
Quarter: 2010Q4

REPORT INFORMATION
  Report Type: 
  Country: None (occurrence: None)
  Receive Date: 20101103
  Receipt Date: 20101029
  Transmission Date: 20110411
  Serious: Yes (Death, Hospitalization)
  Sender: FDA-Public Use
  Company Number: CL-JNJFOC-20101100762

PATIENT
  Age: 54 Year
  Sex: Female
  Weight: 80.5 kg

DRUGS (14)
  1. SIMPONI [Suspect]
     Indication: RHEUMATOID ARTHRITIS
     Route: 058
  2. METHOTREXATE [Suspect]
     Indication: RHEUMATOID ARTHRITIS
  3. SULFASALAZINE [Suspect]
     Indication: RHEUMATOID ARTHRITIS
     Dosage: 1 GRAM
     Route: 048
  4. PREDNISONE [Suspect]
     Indication: RHEUMATOID ARTHRITIS
     Route: 048
  5. HYDROXYCHLOROQUINE [Concomitant]
     Indication: RHEUMATOID ARTHRITIS
     Route: 048
  6. CELECOXIB [Concomitant]
     Route: 048
  7. FOLIC ACID [Concomitant]
     Indication: ANAEMIA PROPHYLAXIS
     Route: 048
  8. ACETAMINOPHEN [Concomitant]
     Indication: ARTHRALGIA
     Route: 048
  9. TRAMADOL HCL [Concomitant]
     Indication: ARTHRALGIA
     Route: 048
  10. METFORMIN [Concomitant]
     Indication: GLUCOSE TOLERANCE IMPAIRED
     Route: 048
  11. ENALAPRIL MALEATE [Concomitant]
     Indication: HYPERTENSION
     Route: 048
  12. FLUOXETINE HCL [Concomitant]
     Indication: AFFECTIVE DISORDER
     Route: 048
  13. AMITRIPTYLINE HCL [Concomitant]
     Indication: AFFECTIVE DISORDER
  14. DIAZEPAM [Concomitant]
     Indication: AFFECTIVE DISORDER
     Route: 048

REACTIONS (1)
  - ARTHRITIS BACTERIAL [None]
